FAERS Safety Report 19376326 (Version 1)
Quarter: 2021Q2

REPORT INFORMATION
  Report Type: Spontaneous
  Country: SE (occurrence: IT)
  Receive Date: 20210604
  Receipt Date: 20210604
  Transmission Date: 20210717
  Serious: Yes (Congenital Anomaly, Other)
  Sender: FDA-Public Use
  Company Number: SE-PFIZER INC-2021597033

PATIENT

DRUGS (3)
  1. PHENYTOIN. [Suspect]
     Active Substance: PHENYTOIN
     Dosage: UNK, DURING 1ST, 2ND AND 3 RD TRIMESTER OF PREGNANCY
     Route: 064
  2. PHENOBARBITAL. [Suspect]
     Active Substance: PHENOBARBITAL
     Dosage: UNK, DURING 2ND AND 3RD TRIMESTER OF PREGNANCY
     Route: 064
  3. PHENOBARBITAL. [Suspect]
     Active Substance: PHENOBARBITAL
     Dosage: 112.5 MG (DURING 1ST TRIMESTER OF PREGNANCY)
     Route: 064

REACTIONS (2)
  - Maternal exposure during pregnancy [Unknown]
  - Hypospadias [Unknown]
